FAERS Safety Report 10215222 (Version 2)
Quarter: 2014Q2

REPORT INFORMATION
  Report Type: Report from Study
  Country: US (occurrence: US)
  Receive Date: 20140603
  Receipt Date: 20140612
  Transmission Date: 20141212
  Serious: Yes (Hospitalization)
  Sender: FDA-Public Use
  Company Number: PHEH2014US011100

PATIENT
  Age: 39 Year
  Sex: Female
  Weight: 90.7 kg

DRUGS (4)
  1. GILENYA [Suspect]
     Indication: MULTIPLE SCLEROSIS
     Dosage: 0.5 MG, QD
     Route: 048
     Dates: start: 201401
  2. GILENYA [Suspect]
     Dosage: 0.5 MG, QOD
     Route: 048
  3. ABILIFY [Suspect]
     Indication: BIPOLAR I DISORDER
  4. VITAMIN B12 [Concomitant]

REACTIONS (4)
  - Anxiety [Recovering/Resolving]
  - Diarrhoea [Unknown]
  - Decreased appetite [Unknown]
  - Prescribed underdose [Unknown]
